FAERS Safety Report 9617405 (Version 6)
Quarter: 2013Q4

REPORT INFORMATION
  Report Type: Report from Study
  Country: US (occurrence: US)
  Receive Date: 20131011
  Receipt Date: 20131223
  Transmission Date: 20140711
  Serious: Yes (Other)
  Sender: FDA-Public Use
  Company Number: US-JNJFOC-20131003331

PATIENT
  Age: 50 Year
  Sex: Female
  Weight: 81.65 kg

DRUGS (18)
  1. REMICADE [Suspect]
     Indication: CROHN^S DISEASE
     Route: 042
     Dates: start: 20130114
  2. REMICADE [Suspect]
     Indication: CROHN^S DISEASE
     Route: 042
     Dates: start: 20130610, end: 201306
  3. REMICADE [Suspect]
     Indication: CROHN^S DISEASE
     Route: 042
     Dates: start: 20130422
  4. METFORMIN [Concomitant]
     Indication: DIABETES MELLITUS
     Route: 048
     Dates: start: 200702
  5. LANTUS [Concomitant]
     Indication: DIABETES MELLITUS
     Route: 058
     Dates: start: 2011
  6. OMEPRAZOLE [Concomitant]
     Indication: DYSPEPSIA
     Route: 048
     Dates: start: 2006
  7. CELEXA [Concomitant]
     Indication: DEPRESSION
     Route: 048
     Dates: start: 2007
  8. CELEXA [Concomitant]
     Indication: DEPRESSION
     Route: 048
     Dates: start: 2006
  9. LOSARTAN POTASSIUM [Concomitant]
     Indication: RENAL IMPAIRMENT
     Route: 048
     Dates: start: 2013
  10. LOSARTAN POTASSIUM [Concomitant]
     Indication: HYPERTENSION
     Route: 048
     Dates: start: 2013
  11. NAPROXEN [Concomitant]
     Indication: PAIN
     Route: 048
     Dates: start: 201308
  12. VITAMIN D2 [Concomitant]
     Indication: BLOOD CALCIUM DECREASED
     Route: 048
     Dates: start: 201308
  13. CALCIUM AND VITAMIN D [Concomitant]
     Indication: BLOOD CALCIUM DECREASED
     Route: 048
     Dates: start: 201308
  14. LISINOPRIL [Concomitant]
     Indication: BLOOD PRESSURE
     Route: 065
  15. NAPROSYN [Concomitant]
     Indication: ARTHRALGIA
     Route: 065
     Dates: start: 201301
  16. PREDNISONE [Concomitant]
     Indication: CROHN^S DISEASE
     Dosage: TAPERED DOSE
     Route: 065
     Dates: start: 201212
  17. ASACOL [Concomitant]
     Indication: CROHN^S DISEASE
     Route: 065
  18. ENTOCORT [Concomitant]
     Indication: CROHN^S DISEASE
     Route: 065
     Dates: start: 2012

REACTIONS (5)
  - Lupus-like syndrome [Recovering/Resolving]
  - Infusion related reaction [Unknown]
  - Hypersensitivity [Unknown]
  - Influenza like illness [Recovering/Resolving]
  - Therapeutic response decreased [Recovered/Resolved]
